FAERS Safety Report 6305893-9 (Version None)
Quarter: 2009Q3

REPORT INFORMATION
  Report Type: 
  Country: None (occurrence: None)
  Receive Date: 20090812
  Receipt Date: 20090804
  Transmission Date: 20100115
  Serious: Yes (Hospitalization)
  Sender: FDA-Public Use
  Company Number: US-KINGPHARMUSA00001-K200900925

PATIENT
  Sex: Male

DRUGS (5)
  1. ALTACE [Suspect]
     Indication: HYPERTENSION
     Dosage: 5 MG, QD
     Route: 048
     Dates: start: 20090710
  2. ALTACE [Suspect]
     Dosage: 2.5 MG, QD
     Route: 048
     Dates: start: 20090101, end: 20090709
  3. BISOCARD [Concomitant]
     Indication: HYPERTENSION
     Dosage: 2.5 MG, UNK
     Route: 048
  4. TERTENSIF [Concomitant]
     Indication: HYPERTENSION
     Dosage: 1 DF, QD
  5. POLOCARD [Concomitant]
     Dosage: 75 MG, UNK

REACTIONS (5)
  - ANXIETY [None]
  - FLIGHT OF IDEAS [None]
  - HYPERHIDROSIS [None]
  - PSYCHOMOTOR HYPERACTIVITY [None]
  - TACHYCARDIA [None]
